FAERS Safety Report 25705199 (Version 1)
Quarter: 2025Q3

REPORT INFORMATION
  Report Type: Report from Study
  Country: US (occurrence: US)
  Receive Date: 20250820
  Receipt Date: 20250820
  Transmission Date: 20251021
  Serious: Yes (Other)
  Sender: ROCHE
  Company Number: US-BoehringerIngelheim-2025-BI-088336

PATIENT
  Age: 84 Year
  Sex: Male

DRUGS (1)
  1. ALTEPLASE [Suspect]
     Active Substance: ALTEPLASE
     Indication: Peripheral ischaemia
     Route: 065

REACTIONS (3)
  - Haemorrhage intracranial [Unknown]
  - Off label use [Unknown]
  - Contraindicated product administered [Unknown]
